FAERS Safety Report 10183072 (Version 1)
Quarter: 2014Q2

REPORT INFORMATION
  Report Type: Spontaneous
  Country: US (occurrence: US)
  Receive Date: 20140520
  Receipt Date: 20140520
  Transmission Date: 20141212
  Serious: No
  Sender: FDA-Public Use
  Company Number: US-BAYER-2014-074417

PATIENT
  Age: 53 Year
  Sex: Female
  Weight: 65.76 kg

DRUGS (1)
  1. ALEVE GELCAPS [Suspect]
     Indication: HEADACHE
     Dosage: 2 DF, BID
     Route: 048
     Dates: start: 201404, end: 201404

REACTIONS (2)
  - Drug ineffective [None]
  - Extra dose administered [None]
